FAERS Safety Report 5605475-8 (Version None)
Quarter: 2008Q1

REPORT INFORMATION
  Report Type: 
  Country: None (occurrence: None)
  Receive Date: 20080117
  Receipt Date: 20080117
  Transmission Date: 20080703
  Serious: No
  Sender: FDA-Public Use
  Company Number: None

PATIENT
  Age: 62 Year
  Sex: Male
  Weight: 124.2856 kg

DRUGS (2)
  1. CEFAZOLIN [Suspect]
     Indication: CELLULITIS
     Dosage: 1 GM 28H IV
     Route: 042
     Dates: start: 20071217
  2. CEFAZOLIN [Suspect]
     Indication: CELLULITIS
     Dosage: 1 GM 28H IV
     Route: 042
     Dates: start: 20071220

REACTIONS (1)
  - RASH PRURITIC [None]
